FAERS Safety Report 7303741-1 (Version None)
Quarter: 2011Q1

REPORT INFORMATION
  Report Type: 
  Country: None (occurrence: None)
  Receive Date: 20110221
  Receipt Date: 20110214
  Transmission Date: 20110831
  Serious: Yes (Hospitalization)
  Sender: FDA-Public Use
  Company Number: GR-ROCHE-742456

PATIENT
  Sex: Female
  Weight: 50 kg

DRUGS (15)
  1. ROACTEMRA [Suspect]
     Dosage: 480 MG:TOTAL MONTHLY DOSE
     Route: 042
     Dates: start: 20100728
  2. ROACTEMRA [Suspect]
     Dosage: 480 MG:TOTAL MONTHLY DOSE
     Route: 042
     Dates: start: 20100702
  3. CONTROLOC [Concomitant]
  4. AMLODIPINE MESILATE [Concomitant]
     Dosage: DRUG REPORTED: AMLODIPINE MESILATE MONOHYDRATE. DOSE: UNKNOWN. FREQUENCY: ONCE DAILY.
     Route: 048
  5. MEDROL [Concomitant]
     Dosage: FREQUENCY: ONCE DAILY.
     Route: 048
  6. PROPAFENONE HYDROCHLORIDE [Concomitant]
     Dosage: DOSE: UNKNOWN.
     Route: 048
  7. CALCIORAL [Concomitant]
  8. ROACTEMRA [Suspect]
     Dosage: 480 MG:TOTAL MONTHLY DOSE
     Route: 042
     Dates: start: 20100827
  9. SALOSPIR [Concomitant]
     Dosage: FREQUENCY: ONCE DAILY
     Route: 048
  10. DIOVAN [Concomitant]
  11. METHOTREXATE [Concomitant]
  12. ROACTEMRA [Suspect]
     Indication: RHEUMATOID ARTHRITIS
     Dosage: FORM: INFUSION
     Route: 042
     Dates: start: 20100422
  13. ROACTEMRA [Suspect]
     Dosage: 480 MG:TOTAL MONTHLY DOSE
     Route: 042
     Dates: start: 20100929
  14. ROACTEMRA [Suspect]
     Route: 042
     Dates: start: 20101001
  15. ONE-ALPHA [Concomitant]

REACTIONS (1)
  - DEMYELINATING POLYNEUROPATHY [None]
